FAERS Safety Report 23903332 (Version 4)
Quarter: 2025Q1

REPORT INFORMATION
  Report Type: Report from Study
  Country: TH (occurrence: TH)
  Receive Date: 20240527
  Receipt Date: 20250131
  Transmission Date: 20250408
  Serious: Yes (Other)
  Sender: TAKEDA
  Company Number: TH-TAKEDA-2024TUS051423

PATIENT
  Age: 49 Year
  Sex: Male

DRUGS (1)
  1. VEDOLIZUMAB [Suspect]
     Active Substance: VEDOLIZUMAB
     Indication: Colitis ulcerative

REACTIONS (5)
  - Chest injury [Unknown]
  - Pulmonary cavitation [Unknown]
  - Product dose omission issue [Unknown]
  - Lung opacity [Unknown]
  - Lung disorder [Unknown]
